FAERS Safety Report 8442195 (Version 3)
Quarter: 2014Q4

REPORT INFORMATION
  Report Type: Spontaneous
  Country: SE (occurrence: SE)
  Receive Date: 20120306
  Receipt Date: 20141217
  Transmission Date: 20150529
  Serious: Yes (Hospitalization, Disabling, Other)
  Sender: FDA-Public Use
  Company Number: SE-AMGEN-SWESP2012012970

PATIENT
  Age: 60 Year
  Sex: Female

DRUGS (6)
  1. REMICADE [Suspect]
     Active Substance: INFLIXIMAB
     Indication: PSORIATIC ARTHROPATHY
     Dosage: UNK
     Route: 065
  2. METHOTREXAT ORION [Concomitant]
     Indication: PSORIATIC ARTHROPATHY
     Dosage: UNK
  3. ENALAPRIL [Concomitant]
     Active Substance: ENALAPRIL
     Dosage: UNK
  4. ENBREL [Suspect]
     Active Substance: ETANERCEPT
     Indication: PSORIATIC ARTHROPATHY
     Dosage: 50 MG, WEEKLY
     Route: 058
     Dates: start: 200901, end: 20090926
  5. ORUDIS RETARD [Concomitant]
     Dosage: UNK, PROLONGED-RELEASE CAPSULE, HARD
  6. HUMIRA [Suspect]
     Active Substance: ADALIMUMAB
     Indication: PSORIATIC ARTHROPATHY
     Dosage: UNK
     Route: 065

REACTIONS (12)
  - Muscle spasms [Recovering/Resolving]
  - Gait disturbance [Recovering/Resolving]
  - Back pain [Recovering/Resolving]
  - Musculoskeletal stiffness [Not Recovered/Not Resolved]
  - Movement disorder [Not Recovered/Not Resolved]
  - Anti-GAD antibody positive [Unknown]
  - Balance disorder [Unknown]
  - Stiff person syndrome [Recovering/Resolving]
  - Muscular weakness [Recovering/Resolving]
  - Fall [Unknown]
  - Drug ineffective [Unknown]
  - CSF oligoclonal band present [Unknown]

NARRATIVE: CASE EVENT DATE: 2009
